FAERS Safety Report 7650574-2 (Version None)
Quarter: 2011Q3

REPORT INFORMATION
  Report Type: 
  Country: None (occurrence: None)
  Receive Date: 20110802
  Receipt Date: 20110720
  Transmission Date: 20111222
  Serious: Yes (Hospitalization, Other)
  Sender: FDA-Public Use
  Company Number: US-ASTRAZENECA-2008UW01685

PATIENT
  Age: 32 Year
  Sex: Female
  Weight: 117.9 kg

DRUGS (43)
  1. SEROQUEL [Suspect]
     Dosage: 25-400MG
     Route: 048
     Dates: start: 20030724, end: 20060403
  2. VISTARIL [Concomitant]
     Route: 065
  3. LANTUS [Concomitant]
     Indication: DIABETES MELLITUS
     Dosage: 35 UNITS DAILY
     Route: 058
  4. EFFEXOR XR [Concomitant]
     Indication: DEPRESSION
     Dosage: 37.5-225 MG
     Route: 048
  5. NABUMETONE [Concomitant]
     Route: 048
  6. ENALAPRIL MALEATE [Concomitant]
     Indication: BLOOD PRESSURE INCREASED
     Dosage: 5-60 MG
     Route: 048
  7. AMBIEN [Concomitant]
     Indication: INSOMNIA
     Route: 048
  8. SEROQUEL [Suspect]
     Indication: SLEEP APNOEA SYNDROME
     Dosage: 50 MG; 300 MG
     Route: 048
     Dates: start: 20000101
  9. SEROQUEL [Suspect]
     Dosage: 25-400MG
     Route: 048
     Dates: start: 20030724, end: 20060403
  10. NEURONTIN [Concomitant]
     Route: 065
  11. CATAPRES [Concomitant]
     Route: 048
  12. PAROXETINE HCL [Concomitant]
     Route: 048
  13. DICLOFENAC SODIUM [Concomitant]
     Route: 048
  14. VERAPAMIL [Concomitant]
     Indication: HYPERTENSION
     Dosage: 180-240 MG
     Route: 048
  15. NAPROSYN [Concomitant]
     Dosage: 100-1000 MG
     Route: 048
  16. ZOLOFT [Concomitant]
     Route: 065
  17. VISTARIL [Concomitant]
     Route: 065
  18. COMBIVENT [Concomitant]
     Route: 065
  19. LEXAPRO [Concomitant]
     Route: 048
  20. FLEXERIL [Concomitant]
     Indication: MUSCLE SPASMS
     Route: 065
  21. MOBIC [Concomitant]
     Route: 048
  22. REMERON [Concomitant]
     Dosage: 15-45 MG
     Route: 048
  23. TYLENOL-500 [Concomitant]
     Indication: PAIN
     Dosage: 325-650 MG
     Route: 048
  24. NOVOLOG [Concomitant]
     Indication: DIABETES MELLITUS
     Dosage: 10 UNITS BEFORE MEAL
     Route: 058
  25. TAZTIA XT [Concomitant]
     Dosage: 240-350 MG
     Route: 048
  26. SEROQUEL [Suspect]
     Dosage: 25-400MG
     Route: 048
     Dates: start: 20030724, end: 20060403
  27. LIPITOR [Concomitant]
     Indication: BLOOD CHOLESTEROL INCREASED
     Dosage: 40-80 MG
     Route: 048
  28. LESCOL XL [Concomitant]
     Route: 048
  29. SEROQUEL [Suspect]
     Indication: ANXIETY
     Dosage: 50 MG; 300 MG
     Route: 048
     Dates: start: 20000101
  30. SEROQUEL [Suspect]
     Dosage: 25-400MG
     Route: 048
     Dates: start: 20030724, end: 20060403
  31. ABILIFY [Concomitant]
     Route: 065
     Dates: start: 20070101
  32. TEGRETOL [Concomitant]
     Route: 065
  33. PROTONIX [Concomitant]
     Route: 048
  34. PRILOSEC [Concomitant]
     Route: 048
  35. SEROQUEL [Suspect]
     Indication: BIPOLAR DISORDER
     Dosage: 50 MG; 300 MG
     Route: 048
     Dates: start: 20000101
  36. SEROQUEL [Suspect]
     Indication: MOOD ALTERED
     Dosage: 50 MG; 300 MG
     Route: 048
     Dates: start: 20000101
  37. ZYPREXA [Concomitant]
     Route: 065
     Dates: start: 19900101
  38. ATIVAN [Concomitant]
     Indication: AGITATION
     Route: 048
  39. FLONASE [Concomitant]
     Indication: HYPERSENSITIVITY
     Route: 045
  40. GEODON [Concomitant]
     Route: 065
     Dates: start: 20070101
  41. HALDOL [Concomitant]
     Route: 065
     Dates: start: 19900101
  42. BUSBAN [Concomitant]
     Route: 065
  43. RISPERDAL [Concomitant]
     Dosage: 1-30 MG
     Route: 065

REACTIONS (26)
  - ROAD TRAFFIC ACCIDENT [None]
  - OBESITY [None]
  - ARTHRITIS [None]
  - SUICIDAL IDEATION [None]
  - HOMICIDAL IDEATION [None]
  - HYPERREFLEXIA [None]
  - VIRAL INFECTION [None]
  - PATHOLOGICAL GAMBLING [None]
  - TYPE 2 DIABETES MELLITUS [None]
  - DYSTHYMIC DISORDER [None]
  - BIPOLAR DISORDER [None]
  - DEPRESSION [None]
  - HYPERTENSION [None]
  - TINEA PEDIS [None]
  - GASTROOESOPHAGEAL REFLUX DISEASE [None]
  - BACK PAIN [None]
  - MENORRHAGIA [None]
  - DYSMENORRHOEA [None]
  - BORDERLINE PERSONALITY DISORDER [None]
  - POST-TRAUMATIC STRESS DISORDER [None]
  - AFFECTIVE DISORDER [None]
  - ARTHRALGIA [None]
  - SPINAL OSTEOARTHRITIS [None]
  - HYPERLIPIDAEMIA [None]
  - BLOOD CHOLESTEROL INCREASED [None]
  - OSTEOARTHRITIS [None]
